FAERS Safety Report 9153473 (Version 2)
Quarter: 2013Q1

REPORT INFORMATION
  Report Type: Spontaneous
  Country: US (occurrence: US)
  Receive Date: 20130311
  Receipt Date: 20130322
  Transmission Date: 20140127
  Serious: No
  Sender: FDA-Public Use
  Company Number: US-009507513-1303USA003679

PATIENT
  Sex: Male

DRUGS (2)
  1. PEGINTRON [Suspect]
     Dosage: UNK
     Dates: start: 20130211
  2. REBETOL [Suspect]

REACTIONS (4)
  - Night sweats [Unknown]
  - Hot flush [Unknown]
  - Rash papular [Unknown]
  - Rash papular [Unknown]
